FAERS Safety Report 6592457-5 (Version None)
Quarter: 2010Q1

REPORT INFORMATION
  Report Type: 
  Country: None (occurrence: None)
  Receive Date: 20100221
  Receipt Date: 20091013
  Transmission Date: 20100710
  Serious: No
  Sender: FDA-Public Use
  Company Number: US-ALLERGAN-0914178US

PATIENT
  Age: 53 Year
  Sex: Female

DRUGS (4)
  1. BOTOX COSMETIC [Suspect]
     Indication: SKIN WRINKLING
     Dosage: 25 UNITS, SINGLE
     Route: 030
     Dates: start: 20090929, end: 20090929
  2. BOTOX COSMETIC [Suspect]
     Dosage: UNK
     Route: 030
  3. BOTOX COSMETIC [Suspect]
     Dosage: UNK
     Route: 030
  4. HORMONE PATCH [Concomitant]
     Route: 062

REACTIONS (3)
  - ANXIETY [None]
  - HYPOAESTHESIA [None]
  - SENSATION OF PRESSURE [None]
